FAERS Safety Report 25493787 (Version 1)
Quarter: 2025Q2

REPORT INFORMATION
  Report Type: Spontaneous
  Country: US (occurrence: US)
  Receive Date: 20250630
  Receipt Date: 20250630
  Transmission Date: 20250717
  Serious: Yes (Hospitalization, Other)
  Sender: BAXTER
  Company Number: US-BAXTER-2025BAX017350

PATIENT
  Age: 68 Year
  Sex: Male

DRUGS (1)
  1. ACETAMINOPHEN [Suspect]
     Active Substance: ACETAMINOPHEN
     Route: 065

REACTIONS (12)
  - Acute kidney injury [Unknown]
  - Coagulopathy [Unknown]
  - Toxicity to various agents [Unknown]
  - Overdose [Unknown]
  - Acute hepatic failure [Unknown]
  - Penile haemorrhage [Unknown]
  - Haematemesis [Unknown]
  - Faeces discoloured [Unknown]
  - Upper gastrointestinal haemorrhage [Unknown]
  - Encephalopathy [Unknown]
  - Anaemia [Unknown]
  - Hypotension [Unknown]
